FAERS Safety Report 5753810-2 (Version None)
Quarter: 2008Q2

REPORT INFORMATION
  Report Type: 
  Country: None (occurrence: None)
  Receive Date: 20080530
  Receipt Date: 20080521
  Transmission Date: 20081010
  Serious: Yes (Life-Threatening, Hospitalization)
  Sender: FDA-Public Use
  Company Number: US-MERCK-0704USA02319

PATIENT
  Age: 55 Year
  Sex: Female
  Weight: 57 kg

DRUGS (4)
  1. MAXALT [Suspect]
     Indication: MIGRAINE
     Route: 060
     Dates: start: 20020601, end: 20040424
  2. ESTROGENS (UNSPECIFIED) [Concomitant]
     Route: 065
  3. VALSARTAN [Concomitant]
     Route: 065
  4. ZOLOFT [Suspect]
     Indication: MIGRAINE
     Route: 048
     Dates: start: 19980601, end: 20040424

REACTIONS (17)
  - AGITATION [None]
  - CHILLS [None]
  - DRUG INEFFECTIVE [None]
  - DRUG INTERACTION [None]
  - ENCEPHALITIS [None]
  - HEADACHE [None]
  - HYPERHIDROSIS [None]
  - HYPERTENSION [None]
  - HYPERTHERMIA [None]
  - LOSS OF CONSCIOUSNESS [None]
  - MIGRAINE WITH AURA [None]
  - MYOCLONUS [None]
  - PARALYSIS [None]
  - SEROTONIN SYNDROME [None]
  - SPEECH DISORDER [None]
  - TREMOR [None]
  - VENTRICULAR TACHYCARDIA [None]
